FAERS Safety Report 6424620-8 (Version None)
Quarter: 2009Q4

REPORT INFORMATION
  Report Type: 
  Country: None (occurrence: None)
  Receive Date: 20091030
  Receipt Date: 20091030
  Transmission Date: 20100525
  Serious: Yes (Hospitalization)
  Sender: FDA-Public Use
  Company Number: None

PATIENT
  Age: 50 Year

DRUGS (2)
  1. LISINOPRIL [Suspect]
     Indication: HYPERTENSION
     Dosage: 20 MG EVERY DAY PO
     Route: 048
     Dates: start: 20090421, end: 20090901
  2. BACLOFEN [Suspect]
     Indication: PAIN
     Dosage: 10 MG AT BEDTIME PO
     Route: 048
     Dates: start: 20090819, end: 20090901

REACTIONS (2)
  - ANGIOEDEMA [None]
  - HYPOAESTHESIA [None]
